FAERS Safety Report 19886666 (Version 1)
Quarter: 2021Q3

REPORT INFORMATION
  Report Type: Spontaneous
  Country: US (occurrence: US)
  Receive Date: 20210928
  Receipt Date: 20210928
  Transmission Date: 20211014
  Serious: No
  Sender: FDA-Public Use
  Company Number: US-BAUSCH-BL-2021-032571

PATIENT
  Age: 72 Year
  Sex: Female

DRUGS (4)
  1. XIFAXAN [Suspect]
     Active Substance: RIFAXIMIN
     Indication: OFF LABEL USE
  2. LEVOTHYROXINE. [Concomitant]
     Active Substance: LEVOTHYROXINE
     Indication: PRODUCT USED FOR UNKNOWN INDICATION
     Route: 065
  3. MULTIVITAMINS [Concomitant]
     Active Substance: VITAMINS
     Indication: PRODUCT USED FOR UNKNOWN INDICATION
     Route: 065
  4. XIFAXAN [Suspect]
     Active Substance: RIFAXIMIN
     Indication: GASTROINTESTINAL BACTERIAL OVERGROWTH
     Route: 048
     Dates: start: 20210917

REACTIONS (2)
  - Off label use [Unknown]
  - Diarrhoea [Unknown]
